FAERS Safety Report 4932714-9 (Version None)
Quarter: 2006Q1

REPORT INFORMATION
  Report Type: 
  Country: None (occurrence: None)
  Receive Date: 20060306
  Receipt Date: 20060227
  Transmission Date: 20060701
  Serious: Yes (Hospitalization, Other)
  Sender: FDA-Public Use
  Company Number: GB-SP-2006-00475

PATIENT
  Age: 63 Year
  Sex: Male

DRUGS (1)
  1. BCG  THERAPEUTICS [Suspect]

REACTIONS (11)
  - ABSCESS [None]
  - BLADDER SPASM [None]
  - DYSURIA [None]
  - NOCTURIA [None]
  - PENILE PAIN [None]
  - PERINEAL PAIN [None]
  - PROSTATIC ABSCESS [None]
  - PROSTATIC SPECIFIC ANTIGEN INCREASED [None]
  - PROSTATITIS [None]
  - STRANGURY [None]
  - TUBERCULOSIS [None]
